FAERS Safety Report 5418589-2 (Version None)
Quarter: 2007Q3

REPORT INFORMATION
  Report Type: 
  Country: None (occurrence: None)
  Receive Date: 20070817
  Receipt Date: 20070810
  Transmission Date: 20080115
  Serious: Yes (Hospitalization)
  Sender: FDA-Public Use
  Company Number: US-SHR-US-2007-009311

PATIENT
  Age: 42 Year
  Sex: Female
  Weight: 56.689 kg

DRUGS (7)
  1. BETASERON [Suspect]
     Indication: RELAPSING-REMITTING MULTIPLE SCLEROSIS
     Dosage: 8 MIU, EVERY 2D
     Route: 058
     Dates: start: 20060409
  2. VANCOMYCIN [Concomitant]
     Dosage: 250 MG, EVERY 12H
     Route: 042
     Dates: start: 20070318
  3. LORTAB [Concomitant]
  4. PROTONIX [Concomitant]
  5. ALBUTEROL [Concomitant]
  6. VALIUM [Concomitant]
  7. ANTIBIOTICS [Concomitant]
     Route: 042

REACTIONS (16)
  - ASTHENIA [None]
  - BLISTER [None]
  - CARDIAC INFECTION [None]
  - COUGH [None]
  - CYST [None]
  - DECUBITUS ULCER [None]
  - GASTRIC ULCER [None]
  - MULTIPLE SCLEROSIS [None]
  - MUSCULOSKELETAL PAIN [None]
  - NAUSEA [None]
  - PAIN [None]
  - PLEURAL EFFUSION [None]
  - PNEUMONIA [None]
  - VOMITING [None]
  - WEIGHT DECREASED [None]
  - WOUND [None]
